FAERS Safety Report 13030042 (Version 1)
Quarter: 2016Q4

REPORT INFORMATION
  Report Type: Spontaneous
  Country: FR (occurrence: FR)
  Receive Date: 20161215
  Receipt Date: 20161215
  Transmission Date: 20170207
  Serious: Yes (Other)
  Sender: FDA-Public Use
  Company Number: FR-BAUSCH-BL-2016-020448

PATIENT
  Age: 77 Year
  Sex: Male
  Weight: 84 kg

DRUGS (1)
  1. VISUDYNE [Suspect]
     Active Substance: VERTEPORFIN
     Indication: AGE-RELATED MACULAR DEGENERATION
     Route: 042
     Dates: start: 20160701, end: 20160701

REACTIONS (5)
  - Photosensitivity reaction [Unknown]
  - Hyperaemia [Unknown]
  - Injection site necrosis [Recovered/Resolved]
  - Hypersensitivity [Unknown]
  - Keloid scar [Unknown]

NARRATIVE: CASE EVENT DATE: 20160702
